FAERS Safety Report 5222705-5 (Version None)
Quarter: 2007Q1

REPORT INFORMATION
  Report Type: 
  Country: None (occurrence: None)
  Receive Date: 20070124
  Receipt Date: 20070112
  Transmission Date: 20070707
  Serious: Yes (Hospitalization)
  Sender: FDA-Public Use
  Company Number: 2006-00477

PATIENT
  Age: 48 Year
  Sex: Male
  Weight: 83 kg

DRUGS (3)
  1. VELCADE [Suspect]
     Indication: MULTIPLE MYELOMA
     Dosage: 1.30 MG/M2, UNK INTRAVENOUS
     Route: 042
     Dates: start: 20060127, end: 20060207
  2. DEXAMETHASONE [Suspect]
     Indication: MULTIPLE MYELOMA
     Dosage: 40.00 MG, UNK, UNKNOWN
     Dates: start: 20060127
  3. PREDNISOLONE [Concomitant]

REACTIONS (19)
  - ANAEMIA [None]
  - ANOREXIA [None]
  - AREFLEXIA [None]
  - ASTHENIA [None]
  - BLOOD ELECTROLYTES ABNORMAL [None]
  - DIARRHOEA [None]
  - EPISTAXIS [None]
  - EXTENSOR PLANTAR RESPONSE [None]
  - FLUID OVERLOAD [None]
  - GENERAL PHYSICAL HEALTH DETERIORATION [None]
  - HYPERPHOSPHATASAEMIA [None]
  - HYPOCALCAEMIA [None]
  - LEUKOPENIA [None]
  - LYMPHOPENIA [None]
  - METABOLIC ACIDOSIS [None]
  - RENAL FAILURE [None]
  - SENSORY DISTURBANCE [None]
  - THROMBOCYTOPENIA [None]
  - TOXIC SKIN ERUPTION [None]
